FAERS Safety Report 9402205 (Version 1)
Quarter: 2013Q3

REPORT INFORMATION
  Report Type: Spontaneous
  Country: US (occurrence: US)
  Receive Date: 20130716
  Receipt Date: 20130716
  Transmission Date: 20140515
  Serious: No
  Sender: FDA-Public Use
  Company Number: US-GLAXOSMITHKLINE-A0999395A

PATIENT
  Age: 50 Year
  Sex: Female

DRUGS (3)
  1. NICORETTE MINIS MINT 2 MG [Suspect]
     Indication: EX-TOBACCO USER
     Dates: start: 201209, end: 201209
  2. NICORETTE NICOTINE POLACRILEX LOZENGE, 4MG [Suspect]
     Indication: EX-TOBACCO USER
  3. NICORETTE OTC, UNSPECIFIED [Suspect]
     Indication: EX-TOBACCO USER

REACTIONS (7)
  - Drug ineffective [Unknown]
  - Malaise [Recovered/Resolved]
  - Salivary hypersecretion [Recovered/Resolved]
  - Retching [Recovered/Resolved]
  - Retching [Recovered/Resolved]
  - Sensitivity of teeth [Recovered/Resolved]
  - Stomatitis [Recovered/Resolved]
